FAERS Safety Report 4756857-8 (Version None)
Quarter: 2005Q3

REPORT INFORMATION
  Report Type: 
  Country: None (occurrence: None)
  Receive Date: 20050830
  Receipt Date: 20050818
  Transmission Date: 20060218
  Serious: Yes (Other)
  Sender: FDA-Public Use
  Company Number: DE-JNJFOC-20050700288

PATIENT
  Sex: Male
  Weight: 100 kg

DRUGS (1)
  1. DURAGESIC-100 [Suspect]
     Route: 062

REACTIONS (21)
  - ANOREXIA [None]
  - ASTHENIA [None]
  - CHILLS [None]
  - COLD SWEAT [None]
  - DISORIENTATION [None]
  - DYSPNOEA EXACERBATED [None]
  - INSOMNIA [None]
  - MENTAL IMPAIRMENT [None]
  - MYALGIA [None]
  - NAUSEA [None]
  - NIGHTMARE [None]
  - PNEUMONIA [None]
  - PRODUCTIVE COUGH [None]
  - PRURITUS [None]
  - PYREXIA [None]
  - SEBORRHOEA [None]
  - TENSION HEADACHE [None]
  - THROAT IRRITATION [None]
  - VERTIGO [None]
  - VOMITING [None]
  - WEIGHT DECREASED [None]
